FAERS Safety Report 7248969-4 (Version None)
Quarter: 2011Q1

REPORT INFORMATION
  Report Type: 
  Country: None (occurrence: None)
  Receive Date: 20110128
  Receipt Date: 20110118
  Transmission Date: 20110831
  Serious: Yes (Other)
  Sender: FDA-Public Use
  Company Number: PHHY2011BE03955

PATIENT
  Age: 6 Year
  Sex: Male

DRUGS (3)
  1. TEGRETOL [Suspect]
     Indication: EPILEPSY
     Dosage: 8 ML, TID
     Route: 048
     Dates: start: 20100101
  2. TEGRETOL [Suspect]
     Indication: AUTISM
     Dosage: 12 ML
  3. TEGRETOL [Suspect]
     Dosage: FOUR HALF TEASPOONS OF ABOUT 2.5 ML

REACTIONS (9)
  - BALANCE DISORDER [None]
  - OVERDOSE [None]
  - VOMITING [None]
  - SOMNOLENCE [None]
  - DECREASED APPETITE [None]
  - MUSCULAR WEAKNESS [None]
  - EPILEPSY [None]
  - MALAISE [None]
  - DYSSTASIA [None]
